FAERS Safety Report 8471551-8 (Version None)
Quarter: 2012Q2

REPORT INFORMATION
  Report Type: 
  Country: None (occurrence: None)
  Receive Date: 20120323
  Receipt Date: 20110930
  Transmission Date: 20120825
  Serious: Yes (Hospitalization)
  Sender: FDA-Public Use
  Company Number: 163-21880-11100088

PATIENT
  Age: 77 Year
  Sex: Male

DRUGS (8)
  1. CENTRUM SILVER (CENTRUM SILVER) [Concomitant]
  2. PREDNISONE TAB [Concomitant]
  3. LEVAQUIN [Concomitant]
  4. REVLIMID [Suspect]
     Indication: MULTIPLE MYELOMA
     Dosage: 25;10 MG, DAILY X 21 DAYS, PO
     Route: 048
     Dates: start: 20110501
  5. REVLIMID [Suspect]
     Indication: MULTIPLE MYELOMA
     Dosage: 25;10 MG, DAILY X 21 DAYS, PO
     Route: 048
     Dates: start: 20101101
  6. REVLIMID [Suspect]
     Indication: MULTIPLE MYELOMA
     Dosage: 25;10 MG, DAILY X 21 DAYS, PO
     Route: 048
     Dates: start: 20101001
  7. METHSCOPOLAMINE BROMIDE (HYOSCINE METHOBROMIDE) [Concomitant]
  8. ANTIHISTAMIN (CHLORPHENAMINE MALEATE) [Concomitant]

REACTIONS (1)
  - INFECTION [None]
